FAERS Safety Report 16204249 (Version 1)
Quarter: 2019Q2

REPORT INFORMATION
  Report Type: Spontaneous
  Country: US (occurrence: US)
  Receive Date: 20190416
  Receipt Date: 20190416
  Transmission Date: 20190711
  Serious: No
  Sender: FDA-Public Use
  Company Number: US-JIANGSU HENGRUI MEDICINE CO., LTD.-2065915

PATIENT

DRUGS (11)
  1. DOCETAXEL. [Concomitant]
     Active Substance: DOCETAXEL
  2. ARIMIDEX [Concomitant]
     Active Substance: ANASTROZOLE
  3. TAMOXIFEN [Concomitant]
     Active Substance: TAMOXIFEN
  4. CYCLOPHOSPHAMIDE FOR INJECTION USP, 500 MG, 1 G AND 2 G PER SINGLE-DOS [Suspect]
     Active Substance: CYCLOPHOSPHAMIDE
  5. ADRIAMYCIN [Concomitant]
     Active Substance: DOXORUBICIN HYDROCHLORIDE
  6. DOXIL [Concomitant]
     Active Substance: DOXORUBICIN HYDROCHLORIDE
  7. ZOMETA [Concomitant]
     Active Substance: ZOLEDRONIC ACID
  8. FULVESTRANT. [Concomitant]
     Active Substance: FULVESTRANT
  9. IBRANCE [Concomitant]
     Active Substance: PALBOCICLIB
  10. TAXOTERE [Concomitant]
     Active Substance: DOCETAXEL
  11. ERIBULIN [Concomitant]
     Active Substance: ERIBULIN

REACTIONS (5)
  - Pyrexia [None]
  - Mucosal inflammation [None]
  - Breast cancer metastatic [None]
  - Disease progression [None]
  - Adverse drug reaction [None]
